FAERS Safety Report 6936132-3 (Version None)
Quarter: 2010Q3

REPORT INFORMATION
  Report Type: 
  Country: None (occurrence: None)
  Receive Date: 20100819
  Receipt Date: 20100819
  Transmission Date: 20110219
  Serious: Yes (Other)
  Sender: FDA-Public Use
  Company Number: None

PATIENT
  Age: 67 Year
  Sex: Male
  Weight: 75.2971 kg

DRUGS (2)
  1. SIMVASTATIN [Suspect]
     Indication: ANGIOPLASTY
     Dosage: 40 MG 1/DAY PO
     Route: 048
     Dates: start: 20100608, end: 20100728
  2. SIMVASTATIN [Suspect]
     Indication: BLOOD CHOLESTEROL INCREASED
     Dosage: 40 MG 1/DAY PO
     Route: 048
     Dates: start: 20100608, end: 20100728

REACTIONS (4)
  - ARTHRALGIA [None]
  - GAIT DISTURBANCE [None]
  - JOINT SWELLING [None]
  - SENSORY DISTURBANCE [None]
